FAERS Safety Report 7262685-4 (Version None)
Quarter: 2011Q1

REPORT INFORMATION
  Report Type: 
  Country: None (occurrence: None)
  Receive Date: 20110130
  Receipt Date: 20100924
  Transmission Date: 20110831
  Serious: No
  Sender: FDA-Public Use
  Company Number: US-ABBOTT-10P-163-0673652-00

PATIENT
  Age: 63 Year
  Sex: Male

DRUGS (8)
  1. BECTICAL [Concomitant]
     Indication: PRODUCT USED FOR UNKNOWN INDICATION
  2. LIDEX [Concomitant]
     Indication: PRODUCT USED FOR UNKNOWN INDICATION
  3. HUMIRA [Suspect]
     Indication: PSORIASIS
     Dates: start: 20100915
  4. LIPITOR [Concomitant]
     Indication: BLOOD CHOLESTEROL
  5. NAPROSYN [Concomitant]
     Indication: PAIN
  6. LAC-HYDRIN [Concomitant]
     Indication: PRODUCT USED FOR UNKNOWN INDICATION
     Dosage: OCCASIONALLY
  7. NAPROSYN [Concomitant]
     Indication: INFLAMMATION
  8. TOPICALS [Concomitant]
     Indication: PSORIASIS

REACTIONS (2)
  - ARTHRITIS [None]
  - DRUG INEFFECTIVE [None]
